FAERS Safety Report 9746304 (Version 1)
Quarter: 2013Q4

REPORT INFORMATION
  Report Type: Spontaneous
  Country: FR (occurrence: FR)
  Receive Date: 20131211
  Receipt Date: 20131211
  Transmission Date: 20140711
  Serious: Yes (Other)
  Sender: FDA-Public Use
  Company Number: FR-BAYER-2013-147918

PATIENT
  Age: 42 Year
  Sex: Female

DRUGS (11)
  1. CIFLOX [Suspect]
     Indication: PYREXIA
     Route: 048
  2. CEFTRIAXONE [Suspect]
     Indication: PYREXIA
  3. OLANZAPINE [Concomitant]
     Indication: MANIA
  4. SODIUM VALPROATE [Concomitant]
     Indication: MANIA
  5. OXAZEPAM [Concomitant]
     Indication: MANIA
  6. RISPERIDONE [Concomitant]
     Indication: MANIA
  7. LITHIUM [Concomitant]
     Indication: MANIA
  8. CYAMEMAZINE [Concomitant]
     Indication: MANIA
  9. ZOPICLONE [Concomitant]
     Indication: MANIA
  10. DIAZEPAM [Concomitant]
     Indication: MANIA
  11. TRIHEXYPHENIDYL [Concomitant]
     Indication: MANIA

REACTIONS (2)
  - Drug reaction with eosinophilia and systemic symptoms [Recovered/Resolved]
  - Toxic epidermal necrolysis [Recovered/Resolved]
